FAERS Safety Report 9374791 (Version 1)
Quarter: 2013Q2

REPORT INFORMATION
  Report Type: Spontaneous
  Country: JP (occurrence: JP)
  Receive Date: 20130628
  Receipt Date: 20130628
  Transmission Date: 20140414
  Serious: Yes (Life-Threatening, Hospitalization)
  Sender: FDA-Public Use
  Company Number: JP-BRACCO-007175

PATIENT
  Age: 76 Year
  Sex: Male

DRUGS (2)
  1. IOPAMIRON [Suspect]
     Indication: ANGIOGRAM
     Dosage: 3.4 M/SEC
     Route: 042
     Dates: start: 20130619, end: 20130619
  2. SEISHOKU [Concomitant]
     Route: 042
     Dates: start: 20130619, end: 20130619

REACTIONS (2)
  - Anaphylactoid shock [Recovered/Resolved]
  - Incorrect dose administered [Recovered/Resolved]
